FAERS Safety Report 9572658 (Version 1)
Quarter: 2013Q1

REPORT INFORMATION
  Report Type: Spontaneous
  Country: US (occurrence: None)
  Receive Date: 20120507
  Receipt Date: 20120507
  Transmission Date: 20140127
  Serious: Yes (Hospitalization)
  Sender: FDA-Public Use
  Company Number: 2010000100

PATIENT
  Age: 55 Year
  Sex: Female
  Weight: 69.4 kg

DRUGS (1)
  1. TARCEVA (ERLOTINIB) (TABLET) (ERLOTINIB) [Suspect]
     Route: 048
     Dates: start: 20091007

REACTIONS (1)
  - Disease progression [None]
